FAERS Safety Report 9957426 (Version 1)
Quarter: 2014Q1

REPORT INFORMATION
  Report Type: Report from Study
  Country: US (occurrence: US)
  Receive Date: 20140304
  Receipt Date: 20140304
  Transmission Date: 20141002
  Serious: No
  Sender: FDA-Public Use
  Company Number: US-ABBVIE-13P-163-1094453-00

PATIENT
  Age: 20 Year
  Sex: Female

DRUGS (5)
  1. HUMIRA [Suspect]
     Indication: CROHN^S DISEASE
     Dates: start: 20130417
  2. ALBUTEROL INHALER [Concomitant]
     Indication: ASTHMA
  3. LEXAPRO [Concomitant]
     Indication: BIPOLAR I DISORDER
     Dosage: 10MG AT BEDTIME
  4. XANAX [Concomitant]
     Indication: ANXIETY
  5. ABILIFY [Concomitant]
     Indication: BIPOLAR I DISORDER
     Dosage: 2MG AT BEDTIME

REACTIONS (1)
  - Injection site pain [Recovered/Resolved]
